FAERS Safety Report 22394870 (Version 5)
Quarter: 2024Q1

REPORT INFORMATION
  Report Type: Spontaneous
  Country: FR (occurrence: FR)
  Receive Date: 20230601
  Receipt Date: 20240319
  Transmission Date: 20240410
  Serious: Yes (Other)
  Sender: FDA-Public Use
  Company Number: FR-JNJFOC-20230563661

PATIENT
  Sex: Female

DRUGS (24)
  1. SIMPONI [Suspect]
     Active Substance: GOLIMUMAB
     Indication: Spondylitis
     Route: 058
     Dates: start: 20160204, end: 20160427
  2. STELARA [Suspect]
     Active Substance: USTEKINUMAB
     Indication: Product used for unknown indication
     Route: 058
     Dates: start: 201808, end: 201811
  3. STELARA [Suspect]
     Active Substance: USTEKINUMAB
     Route: 058
     Dates: start: 20181017
  4. CIMZIA [Suspect]
     Active Substance: CERTOLIZUMAB PEGOL
     Indication: Product used for unknown indication
     Route: 065
     Dates: start: 20150827
  5. CIMZIA [Suspect]
     Active Substance: CERTOLIZUMAB PEGOL
     Dates: start: 20151126
  6. CIMZIA [Suspect]
     Active Substance: CERTOLIZUMAB PEGOL
     Dates: start: 20160803
  7. CIMZIA [Suspect]
     Active Substance: CERTOLIZUMAB PEGOL
     Dates: start: 20170104, end: 20170214
  8. CIMZIA [Suspect]
     Active Substance: CERTOLIZUMAB PEGOL
     Dates: start: 20190104
  9. CIMZIA [Suspect]
     Active Substance: CERTOLIZUMAB PEGOL
     Dates: start: 20190409
  10. CIMZIA [Suspect]
     Active Substance: CERTOLIZUMAB PEGOL
     Dates: start: 20190701, end: 2021
  11. NAPROXEN [Concomitant]
     Active Substance: NAPROXEN
     Dosage: 1 TO 2 SUPPOSITORIES PER DAY
  12. ACETAMINOPHEN\OPIUM [Concomitant]
     Active Substance: ACETAMINOPHEN\OPIUM
     Dosage: UP TO 6 CAPSULES PER DAY IN SPACED DOSES
     Dates: start: 20160204
  13. METHOTREXATE [Concomitant]
     Active Substance: METHOTREXATE
     Dates: start: 20160803, end: 20161011
  14. FOLIC ACID [Concomitant]
     Active Substance: FOLIC ACID
     Dosage: 5
     Dates: start: 20160803
  15. NIFLURIL [NIFLUMIC ACID] [Concomitant]
     Dates: start: 20160803
  16. DAFALGAN CODEINE [Concomitant]
     Active Substance: ACETAMINOPHEN\CODEINE PHOSPHATE
     Dates: start: 20160803
  17. COSENTYX [Concomitant]
     Active Substance: SECUKINUMAB
     Dates: start: 20170214
  18. COSENTYX [Concomitant]
     Active Substance: SECUKINUMAB
     Dates: start: 20170403
  19. COSENTYX [Concomitant]
     Active Substance: SECUKINUMAB
     Dates: start: 20170720
  20. COSENTYX [Concomitant]
     Active Substance: SECUKINUMAB
     Dates: start: 20170308
  21. HYDROCORTISONE [Concomitant]
     Active Substance: HYDROCORTISONE
     Route: 065
  22. HYDROCORTISONE [Concomitant]
     Active Substance: HYDROCORTISONE
     Route: 065
  23. PREDNISONE [Concomitant]
     Active Substance: PREDNISONE
  24. PREDNISONE [Concomitant]
     Active Substance: PREDNISONE

REACTIONS (9)
  - Psoriatic arthropathy [Unknown]
  - Scleroderma [Unknown]
  - Hysterectomy [Unknown]
  - Oophorectomy [Unknown]
  - Loss of therapeutic response [Unknown]
  - Normocytic anaemia [Unknown]
  - Antinuclear antibody positive [Unknown]
  - Sick leave [Unknown]
  - Sacroiliitis [Unknown]

NARRATIVE: CASE EVENT DATE: 20190101
